FAERS Safety Report 4887229-3 (Version None)
Quarter: 2006Q1

REPORT INFORMATION
  Report Type: 
  Country: None (occurrence: None)
  Receive Date: 20060120
  Receipt Date: 20060119
  Transmission Date: 20060701
  Serious: Yes (Death, Hospitalization)
  Sender: FDA-Public Use
  Company Number: FR-SANOFI-SYNTHELABO-F01200600152

PATIENT
  Age: 76 Year
  Sex: Male

DRUGS (10)
  1. OXALIPLATIN [Suspect]
     Indication: COLORECTAL CANCER METASTATIC
     Route: 042
     Dates: start: 20050419, end: 20050419
  2. FLUOROURACIL [Suspect]
     Route: 042
     Dates: start: 20050419, end: 20050419
  3. LEUCOVORIN [Suspect]
     Route: 042
     Dates: start: 20050419, end: 20050419
  4. DIFFU K [Concomitant]
     Dates: start: 20050430, end: 20050504
  5. DETENSIEL [Concomitant]
     Dates: start: 19920615
  6. TOPALGIC [Concomitant]
     Dates: start: 20050430, end: 20050508
  7. SPASFON [Concomitant]
     Dates: start: 20050430
  8. IMODIUM [Concomitant]
     Dates: start: 20050430
  9. BRICANYL [Concomitant]
     Dates: start: 20050430, end: 20050511
  10. ATROVENT [Concomitant]
     Dates: start: 20050430, end: 20050511

REACTIONS (3)
  - GENERAL PHYSICAL HEALTH DETERIORATION [None]
  - RENAL FAILURE [None]
  - WEIGHT DECREASED [None]
